FAERS Safety Report 5529275-2 (Version None)
Quarter: 2007Q4

REPORT INFORMATION
  Report Type: 
  Country: None (occurrence: None)
  Receive Date: 20071129
  Receipt Date: 20070924
  Transmission Date: 20080405
  Serious: No
  Sender: FDA-Public Use
  Company Number: A0684837A

PATIENT
  Age: 42 Year
  Sex: Female
  Weight: 52.3 kg

DRUGS (1)
  1. BUPROPION HCL [Suspect]
     Indication: DEPRESSION
     Dosage: 150MG PER DAY
     Route: 048
     Dates: start: 20070722, end: 20070805

REACTIONS (6)
  - ANXIETY [None]
  - FEELING ABNORMAL [None]
  - INSOMNIA [None]
  - MALAISE [None]
  - NERVOUSNESS [None]
  - TENSION [None]
